FAERS Safety Report 5004876-9 (Version None)
Quarter: 2006Q2

REPORT INFORMATION
  Report Type: 
  Country: None (occurrence: None)
  Receive Date: 20060517
  Receipt Date: 20060215
  Transmission Date: 20061013
  Serious: Yes (Death, Hospitalization)
  Sender: FDA-Public Use
  Company Number: US-MERCK-0602USA04463

PATIENT
  Age: 56 Year
  Sex: Male
  Weight: 89 kg

DRUGS (11)
  1. VIOXX [Suspect]
     Indication: BACK PAIN
     Route: 048
     Dates: start: 20031112, end: 20041001
  2. VIOXX [Suspect]
     Indication: NECK PAIN
     Route: 048
     Dates: start: 20031112, end: 20041001
  3. ASPIRIN [Concomitant]
     Route: 048
  4. PRAVACHOL [Concomitant]
     Indication: BLOOD CHOLESTEROL
     Route: 048
     Dates: start: 20020101
  5. RANITIDINE [Concomitant]
     Indication: ULCER
     Route: 048
  6. PLAVIX [Concomitant]
     Indication: ANTICOAGULANT THERAPY
     Route: 048
     Dates: start: 20020101
  7. ATACAND [Concomitant]
     Route: 065
  8. NAPROXEN [Concomitant]
     Route: 065
  9. VIAGRA [Concomitant]
     Route: 065
  10. SKELAXIN [Concomitant]
     Indication: PAIN
     Route: 065
  11. HYDROCHLOROTHIAZIDE [Concomitant]
     Route: 048

REACTIONS (6)
  - ACUTE MYOCARDIAL INFARCTION [None]
  - CARDIAC FAILURE CONGESTIVE [None]
  - CHEST PAIN [None]
  - HYPOXIA [None]
  - PULMONARY EMBOLISM [None]
  - STOMACH DISCOMFORT [None]
